FAERS Safety Report 14166458 (Version 1)
Quarter: 2017Q4

REPORT INFORMATION
  Report Type: Spontaneous
  Country: US (occurrence: None)
  Receive Date: 20171106
  Receipt Date: 20171106
  Transmission Date: 20180321
  Serious: No
  Sender: FDA-Public Use
  Company Number: None

PATIENT
  Age: 64 Year
  Sex: Female

DRUGS (11)
  1. XANAX [Concomitant]
     Active Substance: ALPRAZOLAM
  2. VITAMIN D [Concomitant]
     Active Substance: CHOLECALCIFEROL
  3. TALTZ [Suspect]
     Active Substance: IXEKIZUMAB
     Indication: PSORIASIS
     Route: 058
     Dates: start: 20170810
  4. PRAVACHOL [Concomitant]
     Active Substance: PRAVASTATIN SODIUM
  5. AMBIEN [Concomitant]
     Active Substance: ZOLPIDEM TARTRATE
  6. ASPIRIN. [Concomitant]
     Active Substance: ASPIRIN
  7. STOOL SOFTNER [Concomitant]
  8. ZETAI [Concomitant]
  9. TRANDOLAPRIL. [Concomitant]
     Active Substance: TRANDOLAPRIL
  10. METOPROLOL. [Concomitant]
     Active Substance: METOPROLOL
  11. PLAVIX [Concomitant]
     Active Substance: CLOPIDOGREL BISULFATE

REACTIONS (1)
  - Breast cancer [None]
